FAERS Safety Report 19015847 (Version 1)
Quarter: 2021Q1

REPORT INFORMATION
  Report Type: Report from Study
  Country: IT (occurrence: IT)
  Receive Date: 20210316
  Receipt Date: 20210316
  Transmission Date: 20210420
  Serious: Yes (Hospitalization)
  Sender: FDA-Public Use
  Company Number: IT-SHIRE-SPV1-2007-05230

PATIENT
  Age: 6 Year
  Sex: Male
  Weight: 34 kg

DRUGS (2)
  1. IDURSULFASE [Suspect]
     Active Substance: IDURSULFASE
     Indication: MUCOPOLYSACCHARIDOSIS II
     Dosage: 12 MG, 1X/WEEK
     Route: 041
     Dates: start: 20060830
  2. IDURSULFASE [Suspect]
     Active Substance: IDURSULFASE
     Dosage: 16 MG, 1X/WEEK
     Route: 041
     Dates: start: 20060906

REACTIONS (1)
  - Cerebral ventricle dilatation [Recovered/Resolved]

NARRATIVE: CASE EVENT DATE: 20071213
